FAERS Safety Report 25060718 (Version 1)
Quarter: 2025Q1

REPORT INFORMATION
  Report Type: Spontaneous
  Country: US (occurrence: US)
  Receive Date: 20250310
  Receipt Date: 20250310
  Transmission Date: 20250409
  Serious: Yes (Other)
  Sender: PFIZER
  Company Number: US-PFIZER INC-202500052383

PATIENT
  Age: 67 Year
  Sex: Male

DRUGS (1)
  1. INLYTA [Suspect]
     Active Substance: AXITINIB
     Dosage: 5 MG, 2X/DAY (TAKE 1 TABLET (5 MG) EVERY 12 HOURS)
     Dates: start: 20250113

REACTIONS (1)
  - Protein total increased [Unknown]
